FAERS Safety Report 18350784 (Version 1)
Quarter: 2020Q4

REPORT INFORMATION
  Report Type: Spontaneous
  Country: US (occurrence: US)
  Receive Date: 20201006
  Receipt Date: 20201006
  Transmission Date: 20210114
  Serious: No
  Sender: FDA-Public Use
  Company Number: US-NOVOPROD-746502

PATIENT
  Sex: Male

DRUGS (2)
  1. RYBELSUS [Suspect]
     Active Substance: SEMAGLUTIDE
     Indication: PRODUCT USED FOR UNKNOWN INDICATION
     Dosage: 3 MG
     Route: 048
     Dates: start: 20200701
  2. RYBELSUS [Suspect]
     Active Substance: SEMAGLUTIDE
     Dosage: 10 MG
     Route: 048
     Dates: end: 20200720

REACTIONS (6)
  - Bowel movement irregularity [Recovering/Resolving]
  - Dyspepsia [Recovering/Resolving]
  - Urinary incontinence [Recovering/Resolving]
  - Gastrointestinal pain [Recovering/Resolving]
  - Abdominal pain upper [Recovering/Resolving]
  - Pollakiuria [Recovering/Resolving]

NARRATIVE: CASE EVENT DATE: 2020
